FAERS Safety Report 5748142-2 (Version None)
Quarter: 2008Q2

REPORT INFORMATION
  Report Type: 
  Country: None (occurrence: None)
  Receive Date: 20080523
  Receipt Date: 20071206
  Transmission Date: 20081010
  Serious: Yes (Hospitalization)
  Sender: FDA-Public Use
  Company Number: US-BOEHRINGER INGELHEIM GMBH, GERMANY-2007-BP-01808BP

PATIENT
  Sex: Female
  Weight: 73 kg

DRUGS (24)
  1. MIRAPEX [Suspect]
     Indication: RESTLESS LEGS SYNDROME
     Route: 048
     Dates: start: 20010305, end: 20040101
  2. EFFEXOR [Concomitant]
  3. ST. JOHN'S WORT [Concomitant]
  4. PROZAC [Concomitant]
     Indication: OBSESSIVE-COMPULSIVE PERSONALITY DISORDER
  5. ATIVAN [Concomitant]
     Indication: ANXIETY
     Route: 048
  6. ATIVAN [Concomitant]
     Indication: AGITATION
  7. MOM [Concomitant]
     Indication: CONSTIPATION
     Route: 048
  8. CLONAZEPAM [Concomitant]
     Indication: RESTLESS LEGS SYNDROME
  9. ESTRADIOL [Concomitant]
     Indication: MENOPAUSE
  10. FLUOXETINE [Concomitant]
     Indication: DEPRESSION
  11. ZOMIG [Concomitant]
     Indication: MIGRAINE
     Dates: start: 19990201
  12. CARISOPRODOL [Concomitant]
  13. PREMARIN [Concomitant]
     Route: 048
  14. TERAZOL CREAM [Concomitant]
  15. AMBIEN [Concomitant]
     Indication: INSOMNIA
  16. NEURONTIN [Concomitant]
     Indication: RESTLESS LEGS SYNDROME
     Route: 048
     Dates: start: 20010401
  17. PAXIL [Concomitant]
     Indication: INTERVERTEBRAL DISC DISORDER
  18. ISO-ACETAZONE [Concomitant]
  19. VIOXX [Concomitant]
  20. FLONASE [Concomitant]
     Indication: RHINITIS ALLERGIC
  21. HYDROCODONE BITARTRATE [Concomitant]
  22. TRIMOX [Concomitant]
  23. GUAIFENESIN/PHENYLEPHRINE [Concomitant]
  24. ZOLOFT [Concomitant]

REACTIONS (9)
  - ECONOMIC PROBLEM [None]
  - EMOTIONAL DISTRESS [None]
  - HYPERPHAGIA [None]
  - INJURY [None]
  - MAJOR DEPRESSION [None]
  - OBSESSIVE-COMPULSIVE DISORDER [None]
  - PATHOLOGICAL GAMBLING [None]
  - SUICIDAL IDEATION [None]
  - WEIGHT INCREASED [None]
